FAERS Safety Report 23534337 (Version 1)
Quarter: 2024Q1

REPORT INFORMATION
  Report Type: Report from Study
  Country: US (occurrence: US)
  Receive Date: 20240217
  Receipt Date: 20240217
  Transmission Date: 20240409
  Serious: Yes (Other)
  Sender: FDA-Public Use
  Company Number: US-ABBVIE-5520018

PATIENT
  Sex: Female

DRUGS (4)
  1. SKYRIZI [Suspect]
     Active Substance: RISANKIZUMAB-RZAA
     Indication: Crohn^s disease
     Dosage: FORM STRENGTH: 180 MILLIGRAM?FREQUENCY TEXT: AT WEEK 12
     Route: 058
     Dates: start: 202401
  2. SKYRIZI [Suspect]
     Active Substance: RISANKIZUMAB-RZAA
     Indication: Crohn^s disease
     Dosage: FORM STRENGTH: 600 MILLIGRAM?FREQUENCY TEXT: WEEK 4
     Route: 042
     Dates: start: 202311, end: 202311
  3. SKYRIZI [Suspect]
     Active Substance: RISANKIZUMAB-RZAA
     Indication: Crohn^s disease
     Dosage: FORM STRENGTH: 600 MILLIGRAM?FREQUENCY TEXT: WEEK 0
     Route: 042
     Dates: start: 20231001, end: 20231001
  4. SKYRIZI [Suspect]
     Active Substance: RISANKIZUMAB-RZAA
     Indication: Crohn^s disease
     Dosage: FORM STRENGTH: 600 MILLIGRAM?FREQUENCY TEXT: WEEK 8
     Route: 042
     Dates: start: 20231219, end: 20231219

REACTIONS (10)
  - Implant site infection [Recovered/Resolved]
  - Illness [Not Recovered/Not Resolved]
  - Arthralgia [Not Recovered/Not Resolved]
  - Blister infected [Not Recovered/Not Resolved]
  - Pyrexia [Unknown]
  - Implant site pain [Unknown]
  - Chills [Unknown]
  - Blood urine present [Not Recovered/Not Resolved]
  - Headache [Not Recovered/Not Resolved]
  - Purulent discharge [Not Recovered/Not Resolved]

NARRATIVE: CASE EVENT DATE: 20230101
